FAERS Safety Report 7307401-2 (Version None)
Quarter: 2011Q1

REPORT INFORMATION
  Report Type: 
  Country: None (occurrence: None)
  Receive Date: 20110223
  Receipt Date: 20110218
  Transmission Date: 20110831
  Serious: Yes (Life-Threatening, Hospitalization)
  Sender: FDA-Public Use
  Company Number: PHHY2011FR11203

PATIENT
  Age: 40 Year
  Sex: Male

DRUGS (2)
  1. RASILEZ [Suspect]
     Dosage: INTAKE OF THE ENTIRE PACK IN SINGLE INTAKE OF 300MG
     Route: 048
  2. AMLOR [Suspect]
     Dosage: TOOK AN ENTIRE PACK IN SINGLE INTAKE

REACTIONS (2)
  - VASOPLEGIA SYNDROME [None]
  - TOXICITY TO VARIOUS AGENTS [None]
